FAERS Safety Report 23040484 (Version 1)
Quarter: 2023Q4

REPORT INFORMATION
  Report Type: Spontaneous
  Country: GB (occurrence: GB)
  Receive Date: 20231006
  Receipt Date: 20231006
  Transmission Date: 20240110
  Serious: Yes (Other)
  Sender: FDA-Public Use
  Company Number: GB-MHRA-MED-202309261148373400-CMKZN

PATIENT
  Age: 12 Year
  Sex: Male
  Weight: 54 kg

DRUGS (4)
  1. DEXAMETHASONE [Suspect]
     Active Substance: DEXAMETHASONE
     Indication: Adverse drug reaction
     Dosage: 4 MILLIGRAM DAILY;
     Route: 065
     Dates: start: 20230905, end: 20230908
  2. DEXAMETHASONE [Suspect]
     Active Substance: DEXAMETHASONE
     Indication: Cough
  3. MORPHINE [Concomitant]
     Active Substance: MORPHINE
     Indication: Adverse drug reaction
  4. MORPHINE [Concomitant]
     Active Substance: MORPHINE
     Indication: Dyspnoea

REACTIONS (1)
  - Bradycardia [Recovered/Resolved]

NARRATIVE: CASE EVENT DATE: 20230907
